FAERS Safety Report 12663164 (Version 1)
Quarter: 2016Q3

REPORT INFORMATION
  Report Type: Spontaneous
  Country: None (occurrence: None)
  Receive Date: 20160817
  Receipt Date: 20160817
  Transmission Date: 20161109
  Serious: Yes (Other)
  Sender: FDA-Public Use
  Company Number: None

PATIENT
  Age: 80 Year
  Sex: Male
  Weight: 77.11 kg

DRUGS (6)
  1. XARELTO [Suspect]
     Active Substance: RIVAROXABAN
     Indication: ATRIAL FIBRILLATION
     Route: 048
  2. LOW-DOSE ASPIRIN [Concomitant]
     Active Substance: ASPIRIN
  3. ELLIQUIS [Concomitant]
  4. CENTRUM SILVER [Concomitant]
     Active Substance: MINERALS\VITAMINS
  5. VALSARTIN [Concomitant]
  6. FINASTERIDE. [Concomitant]
     Active Substance: FINASTERIDE

REACTIONS (5)
  - Pruritus [None]
  - Pain [None]
  - Dry skin [None]
  - Suicidal ideation [None]
  - Haemorrhage [None]

NARRATIVE: CASE EVENT DATE: 20160501
